FAERS Safety Report 8538639-4 (Version None)
Quarter: 2012Q3

REPORT INFORMATION
  Report Type: 
  Country: None (occurrence: None)
  Receive Date: 20120713
  Receipt Date: 20120629
  Transmission Date: 20120928
  Serious: Yes (Other)
  Sender: FDA-Public Use
  Company Number: 2012000165

PATIENT
  Age: 84 Year
  Sex: Female

DRUGS (4)
  1. ACEON [Suspect]
     Indication: PRODUCT USED FOR UNKNOWN INDICATION
     Dosage: ORAL
     Route: 048
     Dates: start: 20100101
  2. AMLODIPINE [Concomitant]
  3. ACETAMINOPHEN [Concomitant]
  4. THYROID THERAPY [Concomitant]

REACTIONS (5)
  - HYPERTENSION [None]
  - DIZZINESS [None]
  - HEARING IMPAIRED [None]
  - ASTHENIA [None]
  - HEADACHE [None]
